FAERS Safety Report 6397915-4 (Version None)
Quarter: 2009Q4

REPORT INFORMATION
  Report Type: 
  Country: None (occurrence: None)
  Receive Date: 20091013
  Receipt Date: 20091005
  Transmission Date: 20100525
  Serious: Yes (Death)
  Sender: FDA-Public Use
  Company Number: CA-ALLERGAN-0908759US

PATIENT
  Age: 29 Year
  Sex: Male

DRUGS (2)
  1. BOTOX [Suspect]
     Indication: MUSCLE SPASTICITY
     Dosage: 400 UNITS, SINGLE
     Route: 030
     Dates: start: 20090401, end: 20090401
  2. BOTOX [Suspect]
     Dosage: 200 UNK, SINGLE
     Route: 030
     Dates: start: 20041215, end: 20041215

REACTIONS (1)
  - DEATH [None]
